FAERS Safety Report 21742161 (Version 3)
Quarter: 2023Q1

REPORT INFORMATION
  Report Type: Spontaneous
  Country: JP (occurrence: JP)
  Receive Date: 20221216
  Receipt Date: 20230207
  Transmission Date: 20230417
  Serious: Yes (Hospitalization)
  Sender: FDA-Public Use
  Company Number: JP-BAYER-2022A170693

PATIENT
  Age: 59 Year
  Sex: Male

DRUGS (2)
  1. XARELTO [Suspect]
     Active Substance: RIVAROXABAN
     Indication: Deep vein thrombosis
     Dosage: DAILY DOSE 30 MG
     Route: 048
     Dates: start: 20220428, end: 20220519
  2. XARELTO [Suspect]
     Active Substance: RIVAROXABAN
     Indication: Deep vein thrombosis
     Dosage: DAILY DOSE 15 MG
     Route: 048
     Dates: start: 20220520, end: 20220526

REACTIONS (1)
  - Anticoagulant-related nephropathy [Not Recovered/Not Resolved]

NARRATIVE: CASE EVENT DATE: 20220526
